FAERS Safety Report 20868474 (Version 1)
Quarter: 2022Q2

REPORT INFORMATION
  Report Type: Spontaneous
  Country: US (occurrence: None)
  Receive Date: 20220524
  Receipt Date: 20220524
  Transmission Date: 20220721
  Serious: Yes (Other)
  Sender: FDA-Public Use
  Company Number: None

PATIENT
  Age: 37 Year
  Sex: Male
  Weight: 98.1 kg

DRUGS (8)
  1. BUPRENORPHINE HYDROCHLORIDE [Suspect]
     Active Substance: BUPRENORPHINE HYDROCHLORIDE
     Indication: Substance use disorder
     Dosage: OTHER QUANTITY : 2 TABLET(S);?
     Route: 060
  2. CETIRIZINE HCL [Concomitant]
  3. CLONIDINE HCL [Concomitant]
  4. TRIAMCINOLONE ACETONIDE [Concomitant]
  5. VALACYCLOVIR HYDROCHLORIDE [Concomitant]
     Active Substance: VALACYCLOVIR HYDROCHLORIDE
  6. DOCUSATE SODIUM [Concomitant]
  7. NAPROXEN [Concomitant]
  8. POLYETHYLENE GLYCOL [Concomitant]

REACTIONS (3)
  - Nausea [None]
  - Withdrawal syndrome [None]
  - Middle insomnia [None]

NARRATIVE: CASE EVENT DATE: 20220509
